FAERS Safety Report 9374342 (Version 2)
Quarter: 2013Q3

REPORT INFORMATION
  Report Type: Spontaneous
  Country: GB (occurrence: GB)
  Receive Date: 20130628
  Receipt Date: 20130930
  Transmission Date: 20140515
  Serious: Yes (Other)
  Sender: FDA-Public Use
  Company Number: PHFR2013GB002528

PATIENT
  Age: 59 Year
  Sex: Male

DRUGS (1)
  1. CLOZARIL [Suspect]
     Dosage: UNK
     Route: 048
     Dates: start: 20050608

REACTIONS (4)
  - Myasthenia gravis [Recovering/Resolving]
  - VIIth nerve paralysis [Recovering/Resolving]
  - Malaise [Unknown]
  - Differential white blood cell count abnormal [Recovered/Resolved]
